FAERS Safety Report 10013571 (Version 1)
Quarter: 2014Q1

REPORT INFORMATION
  Report Type: Spontaneous
  Country: NL (occurrence: NL)
  Receive Date: 20140315
  Receipt Date: 20140315
  Transmission Date: 20141002
  Serious: Yes (Death)
  Sender: FDA-Public Use
  Company Number: NL-AMGEN-NLDSP2014017440

PATIENT
  Age: 74 Year
  Sex: Male

DRUGS (2)
  1. XGEVA [Suspect]
     Indication: METASTASES TO BONE
     Dosage: 70 MG/ML, Q4WK
     Route: 058
     Dates: end: 20140310
  2. XGEVA [Suspect]
     Indication: PROPHYLAXIS

REACTIONS (1)
  - Death [Fatal]
